FAERS Safety Report 7177186-1 (Version None)
Quarter: 2010Q4

REPORT INFORMATION
  Report Type: 
  Country: None (occurrence: None)
  Receive Date: 20101207
  Receipt Date: 20101123
  Transmission Date: 20110411
  Serious: Yes (Hospitalization)
  Sender: FDA-Public Use
  Company Number: 7029962

PATIENT
  Age: 60 Year
  Sex: Female

DRUGS (1)
  1. HYDROXOCOBALAMIN [Suspect]
     Indication: CHEMICAL POISONING
     Dosage: 2.5 GM,
     Route: 042

REACTIONS (14)
  - ANION GAP INCREASED [None]
  - BRAIN INJURY [None]
  - CENTRAL NERVOUS SYSTEM NECROSIS [None]
  - CEREBRAL ATROPHY [None]
  - CEREBRAL HAEMORRHAGE [None]
  - CEREBRAL VENTRICLE DILATATION [None]
  - CHOREOATHETOSIS [None]
  - DYSARTHRIA [None]
  - ERYTHEMA [None]
  - EXTRAPYRAMIDAL DISORDER [None]
  - HYPERTONIA [None]
  - INCORRECT DOSE ADMINISTERED [None]
  - PNEUMONIA [None]
  - SHOCK [None]
